FAERS Safety Report 5282080-7 (Version None)
Quarter: 2007Q1

REPORT INFORMATION
  Report Type: 
  Country: None (occurrence: None)
  Receive Date: 20070330
  Receipt Date: 20070319
  Transmission Date: 20070707
  Serious: Yes (Hospitalization, Other)
  Sender: FDA-Public Use
  Company Number: US-PFIZER INC-2005170543

PATIENT
  Sex: Female

DRUGS (9)
  1. NEURONTIN [Suspect]
     Indication: BIPOLAR DISORDER
  2. NEURONTIN [Suspect]
     Indication: DEPRESSION
  3. PAXIL [Suspect]
  4. GABITRIL [Suspect]
     Dates: start: 20040101
  5. LEXAPRO [Suspect]
  6. DEPAKOTE [Suspect]
  7. ALPRAZOLAM [Concomitant]
  8. HYDROCODONE W/ACETYLSALICYLIC ACID [Concomitant]
  9. REMERON [Concomitant]

REACTIONS (11)
  - CONVULSION [None]
  - DIZZINESS [None]
  - DRUG INEFFECTIVE [None]
  - ENCEPHALOPATHY [None]
  - HEADACHE [None]
  - MENTAL STATUS CHANGES [None]
  - NAUSEA [None]
  - OVERDOSE [None]
  - SUICIDE ATTEMPT [None]
  - TACHYCARDIA [None]
  - VOMITING [None]
